FAERS Safety Report 24829523 (Version 1)
Quarter: 2025Q1

REPORT INFORMATION
  Report Type: Spontaneous
  Country: AR (occurrence: AR)
  Receive Date: 20250110
  Receipt Date: 20250110
  Transmission Date: 20250409
  Serious: Yes (Other)
  Sender: AMGEN
  Company Number: AR-AMGEN-ARGSP2025000749

PATIENT
  Age: 57 Year
  Sex: Male

DRUGS (6)
  1. TRASTUZUMAB [Suspect]
     Active Substance: TRASTUZUMAB
     Indication: Salivary gland cancer
     Route: 065
  2. PREDNISONE [Suspect]
     Active Substance: PREDNISONE
     Indication: Salivary gland cancer
     Route: 065
  3. PACLITAXEL [Concomitant]
     Active Substance: PACLITAXEL
     Indication: Salivary gland cancer
  4. BICALUTAMIDE [Concomitant]
     Active Substance: BICALUTAMIDE
     Indication: Salivary gland cancer
  5. LEUPROLIDE [Concomitant]
     Active Substance: LEUPROLIDE
     Indication: Salivary gland cancer
  6. ABIRATERONE [Concomitant]
     Active Substance: ABIRATERONE
     Indication: Salivary gland cancer

REACTIONS (2)
  - Metastatic salivary gland cancer [Unknown]
  - Off label use [Unknown]
